FAERS Safety Report 4415146-1 (Version None)
Quarter: 2004Q3

REPORT INFORMATION
  Report Type: 
  Country: None (occurrence: None)
  Receive Date: 20040730
  Receipt Date: 20040723
  Transmission Date: 20050211
  Serious: Yes (Hospitalization)
  Sender: FDA-Public Use
  Company Number: ZONI001477

PATIENT
  Age: 69 Year
  Sex: Female

DRUGS (3)
  1. EXCEGRAN (ZONISAMIDE) [Suspect]
     Indication: TRIGEMINAL NEURALGIA
     Dosage: 200 MG DAILY
     Dates: start: 20030630, end: 20030807
  2. MINOMYCIN (MINOCYCLINE HYDROCHLORIDE) [Concomitant]
  3. TEGRETOL [Concomitant]

REACTIONS (1)
  - DRUG HYPERSENSITIVITY [None]
